FAERS Safety Report 18006789 (Version 1)
Quarter: 2020Q3

REPORT INFORMATION
  Report Type: Spontaneous
  Country: JP (occurrence: JP)
  Receive Date: 20200710
  Receipt Date: 20200710
  Transmission Date: 20201103
  Serious: No
  Sender: FDA-Public Use
  Company Number: JP-ELI_LILLY_AND_COMPANY-JP202007002903

PATIENT
  Age: 35 Year
  Sex: Male

DRUGS (1)
  1. DULOXETINE HYDROCHLORIDE. [Suspect]
     Active Substance: DULOXETINE HYDROCHLORIDE
     Indication: OSTEOARTHRITIS
     Dosage: 60 MG, DAILY
     Route: 048
     Dates: start: 20190323

REACTIONS (2)
  - Nausea [Recovered/Resolved]
  - Hepatic function abnormal [Unknown]
